FAERS Safety Report 23349344 (Version 1)
Quarter: 2023Q4

REPORT INFORMATION
  Report Type: Report from Study
  Country: CA (occurrence: CA)
  Receive Date: 20231229
  Receipt Date: 20231229
  Transmission Date: 20240109
  Serious: Yes (Other)
  Sender: FDA-Public Use
  Company Number: None

PATIENT
  Sex: Female

DRUGS (22)
  1. METHOTREXATE [Suspect]
     Active Substance: METHOTREXATE
     Indication: Product used for unknown indication
     Dosage: 1 EVERY 1 WEEKS
     Route: 058
  2. ACTEMRA [Suspect]
     Active Substance: TOCILIZUMAB
     Indication: Rheumatoid arthritis
     Dosage: 1 EVERY 4 WEEKS
     Route: 042
  3. STATEX [Concomitant]
  4. STOOL SOFTENER (DOCUSATE) [Concomitant]
     Active Substance: DOCUSATE
  5. VITAMIN C [Concomitant]
     Active Substance: ASCORBIC ACID
  6. ABILIFY [Concomitant]
     Active Substance: ARIPIPRAZOLE
  7. AMLODIPINE [Concomitant]
     Active Substance: AMLODIPINE BESYLATE
  8. BISOPROLOL [Concomitant]
     Active Substance: BISOPROLOL\BISOPROLOL FUMARATE
  9. CALCIUM [Concomitant]
     Active Substance: CALCIUM
  10. CELEBREX [Concomitant]
     Active Substance: CELECOXIB
  11. CLONAZEPAM [Concomitant]
     Active Substance: CLONAZEPAM
  12. FOLIC ACID [Concomitant]
     Active Substance: FOLIC ACID
     Dosage: 1 EVERY 1 DAYS
     Route: 065
  13. GLUCOSAMINE [Concomitant]
     Active Substance: GLUCOSAMINE
  14. HYDROCHLOROTHIAZIDE [Concomitant]
     Active Substance: HYDROCHLOROTHIAZIDE
  15. HYDROXYCHLOROQUINE SULFATE [Concomitant]
     Active Substance: HYDROXYCHLOROQUINE SULFATE
  16. IRON [Concomitant]
     Active Substance: IRON
  17. MELATONIN [Concomitant]
     Active Substance: MELATONIN
  18. ACTEMRA [Suspect]
     Active Substance: TOCILIZUMAB
     Indication: Rheumatoid arthritis
     Dosage: 1 EVERY 4 WEEKS
     Route: 042
  19. ACTEMRA [Suspect]
     Active Substance: TOCILIZUMAB
     Indication: Rheumatoid arthritis
     Dosage: 1 EVERY 4 WEEKS
     Route: 042
  20. ACTEMRA [Suspect]
     Active Substance: TOCILIZUMAB
     Indication: Rheumatoid arthritis
     Dosage: 1 EVERY 4 WEEKS
     Route: 042
  21. ACTEMRA [Suspect]
     Active Substance: TOCILIZUMAB
     Indication: Rheumatoid arthritis
     Dosage: 1 EVERY 4 WEEKS
     Route: 042
  22. METHOTREXATE [Suspect]
     Active Substance: METHOTREXATE
     Indication: Product used for unknown indication
     Dosage: 1 EVERY 1 WEEKS
     Route: 058

REACTIONS (2)
  - Fallopian tube disorder [Unknown]
  - Ovarian disorder [Unknown]
